FAERS Safety Report 5962138-7 (Version None)
Quarter: 2008Q4

REPORT INFORMATION
  Report Type: 
  Country: None (occurrence: None)
  Receive Date: 20081119
  Receipt Date: 20080811
  Transmission Date: 20090506
  Serious: No
  Sender: FDA-Public Use
  Company Number: WAES 0808USA01906

PATIENT
  Age: 63 Year
  Sex: Female

DRUGS (8)
  1. JANUVIA [Suspect]
     Indication: DIABETES MELLITUS
     Dosage: 100 MG/DAILY/PO
     Route: 048
     Dates: start: 20080411
  2. ALDACTONE [Concomitant]
  3. GLUCOVANCE [Concomitant]
  4. PLAVIX [Concomitant]
  5. ZOCOR [Concomitant]
  6. ASPIRIN [Concomitant]
  7. CARVEDILOL [Concomitant]
  8. RAMIPRIL [Concomitant]

REACTIONS (1)
  - VISION BLURRED [None]
